FAERS Safety Report 19959586 (Version 1)
Quarter: 2021Q4

REPORT INFORMATION
  Report Type: Spontaneous
  Country: FR (occurrence: FR)
  Receive Date: 20211015
  Receipt Date: 20211015
  Transmission Date: 20220303
  Serious: Yes (Other)
  Sender: FDA-Public Use
  Company Number: FR-AMGEN-FRASP2021096494

PATIENT
  Age: 15 Day
  Sex: Male

DRUGS (3)
  1. CINACALCET HYDROCHLORIDE [Suspect]
     Active Substance: CINACALCET HYDROCHLORIDE
     Indication: Hyperparathyroidism
     Dosage: 1 DOSAGE FORM, QD (0.5 MG/KG, QD)
     Route: 048
  2. CINACALCET HYDROCHLORIDE [Suspect]
     Active Substance: CINACALCET HYDROCHLORIDE
     Dosage: 1 DOSAGE FORM, QD (3 MG/KG, QD)
     Route: 048
  3. OXYGEN [Concomitant]
     Active Substance: OXYGEN
     Indication: Respiratory distress
     Dosage: UNK

REACTIONS (3)
  - Nephrocalcinosis [Unknown]
  - Drug effective for unapproved indication [Unknown]
  - Off label use [Unknown]
